FAERS Safety Report 6574469-0 (Version None)
Quarter: 2010Q1

REPORT INFORMATION
  Report Type: 
  Country: None (occurrence: None)
  Receive Date: 20100209
  Receipt Date: 20090811
  Transmission Date: 20100710
  Serious: No
  Sender: FDA-Public Use
  Company Number: A0801636A

PATIENT
  Age: 33 Year
  Sex: Female

DRUGS (2)
  1. PAXIL [Suspect]
     Indication: PANIC DISORDER
     Route: 048
     Dates: start: 20060101, end: 20060101
  2. PAXIL CR [Suspect]
     Indication: PANIC DISORDER
     Dosage: 37.5MG TWICE PER DAY
     Route: 048
     Dates: start: 20060101, end: 20060101

REACTIONS (3)
  - DRUG INEFFECTIVE [None]
  - EATING DISORDER [None]
  - INSOMNIA [None]
